FAERS Safety Report 16904936 (Version 1)
Quarter: 2019Q4

REPORT INFORMATION
  Report Type: Spontaneous
  Country: DE (occurrence: DE)
  Receive Date: 20191010
  Receipt Date: 20191010
  Transmission Date: 20200122
  Serious: Yes (Congenital Anomaly)
  Sender: FDA-Public Use
  Company Number: DE-BAUSCH-BL-2019-055466

PATIENT
  Sex: Male
  Weight: 3.78 kg

DRUGS (9)
  1. DUORESP SPIROMAX [Concomitant]
     Active Substance: BUDESONIDE\FORMOTEROL
     Indication: PRODUCT USED FOR UNKNOWN INDICATION
     Dosage: 4.5 (MICROGRAM/D (9-0-9) / 160 (MICROGRAM/D (320-0-320))
     Route: 064
     Dates: start: 20180519, end: 20190222
  2. FOLSAURE [Concomitant]
     Active Substance: FOLIC ACID
     Indication: PRODUCT USED FOR UNKNOWN INDICATION
     Route: 064
  3. VENLAFAXINE [Suspect]
     Active Substance: VENLAFAXINE HYDROCHLORIDE
     Indication: PRODUCT USED FOR UNKNOWN INDICATION
     Dosage: 75 (MG/D)
     Route: 064
     Dates: start: 20180512, end: 20190222
  4. KETANEST [Concomitant]
     Indication: PRODUCT USED FOR UNKNOWN INDICATION
     Dosage: ONCE AROUND CONCEPTION OR THE WEEK BEFORE CONCEPTION
     Route: 064
  5. QUETIAPINE. [Suspect]
     Active Substance: QUETIAPINE
     Indication: PRODUCT USED FOR UNKNOWN INDICATION
     Dosage: 50 (MG/D)
     Route: 064
     Dates: start: 20180512, end: 20190222
  6. PROPOFOL. [Concomitant]
     Active Substance: PROPOFOL
     Indication: PRODUCT USED FOR UNKNOWN INDICATION
     Dosage: ONCE AROUND CONCEPTION OR THE WEEK BEFORE CONCEPTION
     Route: 064
  7. SPIRIVA RESPIMAT [Concomitant]
     Active Substance: TIOTROPIUM BROMIDE
     Indication: PRODUCT USED FOR UNKNOWN INDICATION
     Dosage: 2.5 (MICROGRAM/D)/ IF REQUIRED
     Route: 064
     Dates: start: 20180519, end: 20190222
  8. HYDROMORPHONE [Suspect]
     Active Substance: HYDROMORPHONE
     Indication: PRODUCT USED FOR UNKNOWN INDICATION
     Dosage: 20 MG/D (BIS 2)
     Route: 064
     Dates: start: 20180512, end: 20181119
  9. VAXIGRIPTETRA [Concomitant]
     Active Substance: INFLUENZA VIRUS VACCINE QUADRIVALENT TYPE A+B
     Indication: PRODUCT USED FOR UNKNOWN INDICATION
     Route: 064
     Dates: start: 20181017, end: 20181017

REACTIONS (4)
  - Congenital hydronephrosis [Unknown]
  - Congenital megaureter [Unknown]
  - Kidney duplex [Unknown]
  - Foetal exposure during pregnancy [Unknown]
